FAERS Safety Report 14557701 (Version 5)
Quarter: 2020Q1

REPORT INFORMATION
  Report Type: Spontaneous
  Country: JP (occurrence: JP)
  Receive Date: 20180221
  Receipt Date: 20200327
  Transmission Date: 20200409
  Serious: Yes (Death, Hospitalization)
  Sender: FDA-Public Use
  Company Number: JP-ASTRAZENECA-2018SE21058

PATIENT
  Age: 31665 Day
  Sex: Female
  Weight: 46 kg

DRUGS (9)
  1. AMOBANTES [Concomitant]
     Active Substance: ZOPICLONE
     Dosage: 7.5 MG BEFORE BEDTIME
     Route: 048
  2. ARTIST [Concomitant]
     Active Substance: CARVEDILOL
     Dosage: 2.5 MG TWICE A DAY, AFTER BREAKFAST AND DINNER
     Route: 048
  3. ARTIST [Concomitant]
     Active Substance: CARVEDILOL
     Dosage: 5 MG TWICE A DAY, AFTER BREAKFAST AND DINNER
     Route: 048
  4. ENALAPRIL [Concomitant]
     Active Substance: ENALAPRIL
     Indication: HYPERTENSION
     Dosage: 2.5 MG TWICE A DAY, AFTER BREAKFAST AND DINNER
     Route: 048
  5. NEXIUM [Suspect]
     Active Substance: ESOMEPRAZOLE MAGNESIUM
     Dosage: 20 MG AFTER BREAKFAST
     Route: 048
  6. LIXIANA [Concomitant]
     Active Substance: EDOXABAN TOSYLATE
     Dosage: 30 MG AFTER BREAKFAST
     Route: 048
  7. SPIRONOLACTONE. [Concomitant]
     Active Substance: SPIRONOLACTONE
     Indication: HYPERTENSION
     Dosage: 25 MG AFTER BREAKFAST
     Route: 048
  8. CEPHADOL [Concomitant]
     Active Substance: DIPHENIDOL HYDROCHLORIDE
     Dosage: 25 MG THREE TIMES A DAY, AFTER EACH MEAL (WHEN FEELING DIZZY)
     Route: 048
  9. AZOSEMIDE [Concomitant]
     Active Substance: AZOSEMIDE
     Dosage: 60 MG AFTER BREAKFAST
     Route: 048

REACTIONS (3)
  - Cardiac failure acute [Recovering/Resolving]
  - Cardiac arrest [Fatal]
  - Atrial fibrillation [Recovering/Resolving]

NARRATIVE: CASE EVENT DATE: 20170917
